FAERS Safety Report 9344577 (Version 1)
Quarter: 2013Q2

REPORT INFORMATION
  Report Type: Other
  Country: DK (occurrence: DK)
  Receive Date: 20130612
  Receipt Date: 20130612
  Transmission Date: 20140414
  Serious: Yes (Life-Threatening, Hospitalization)
  Sender: FDA-Public Use
  Company Number: DK-ACTAVIS-2013-10674

PATIENT
  Age: 86 Year
  Sex: Female

DRUGS (10)
  1. TRAMADOL HYDROCHLORIDE (UNKNOWN) [Suspect]
     Indication: SCIATICA
     Dosage: ALMOST 400 MG DAILY +EXTRA WHEN PT FINDS IT NECESSARY
     Route: 048
     Dates: start: 20130507, end: 20130523
  2. MAREVAN [Suspect]
     Indication: ANTICOAGULANT THERAPY
     Route: 048
  3. MOVICOL                            /01625101/ [Concomitant]
     Indication: CONSTIPATION
     Route: 065
  4. KALEORID [Concomitant]
     Indication: HYPOKALAEMIA
     Route: 065
  5. HJERTEMAGNYL                       /00228701/ [Concomitant]
     Indication: ANTICOAGULANT THERAPY
     Route: 065
  6. CORDARONE X [Concomitant]
     Indication: ARRHYTHMIA
     Route: 065
  7. FURIX [Concomitant]
     Indication: OEDEMA
     Route: 065
  8. METOPROLOLSUCCINAT 1 A PHARMA [Concomitant]
     Indication: HYPERTENSION
     Route: 065
  9. ELTROXIN [Concomitant]
     Indication: METABOLIC DISORDER
     Route: 065
  10. PINEX                              /00020001/ [Concomitant]
     Indication: ADVERSE DRUG REACTION

REACTIONS (3)
  - Coagulation time prolonged [Recovered/Resolved]
  - Drug interaction [Recovered/Resolved]
  - International normalised ratio increased [None]
